FAERS Safety Report 13752199 (Version 1)
Quarter: 2017Q3

REPORT INFORMATION
  Report Type: Not Available
  Country: TR (occurrence: TR)
  Receive Date: 20170713
  Receipt Date: 20170713
  Transmission Date: 20171127
  Serious: Yes (Other)
  Sender: FDA-Public Use
  Company Number: TR-ANIPHARMA-2017-TR-000022

PATIENT
  Age: 23 Year
  Sex: Female

DRUGS (1)
  1. LANSOPRAZOLE (NON-SPECIFIC) [Suspect]
     Active Substance: LANSOPRAZOLE
     Dosage: 40MG/DAY

REACTIONS (1)
  - Subacute cutaneous lupus erythematosus [Unknown]
